FAERS Safety Report 14635754 (Version 1)
Quarter: 2018Q1

REPORT INFORMATION
  Report Type: Spontaneous
  Country: US (occurrence: US)
  Receive Date: 20180313
  Receipt Date: 20180313
  Transmission Date: 20180509
  Serious: No
  Sender: FDA-Public Use
  Company Number: None

PATIENT
  Age: 26 Year
  Sex: Male
  Weight: 68.04 kg

DRUGS (9)
  1. GREEN STRAIN TROPICAL KRATOM [Suspect]
     Active Substance: MITRAGYNINE\HERBALS
     Indication: DRUG WITHDRAWAL MAINTENANCE THERAPY
     Route: 048
     Dates: start: 20160101
  2. ROYAL KRATOM BALI [Suspect]
     Active Substance: MITRAGYNINE\HERBALS
     Indication: DRUG WITHDRAWAL MAINTENANCE THERAPY
     Route: 048
     Dates: start: 20160101
  3. AGMANTINE SULPHATE [Concomitant]
  4. ASHWAGANDHA [Concomitant]
     Active Substance: HERBALS
  5. KRATOM GREEN MAGNA DA [Suspect]
     Active Substance: MITRAGYNINE\HERBALS
     Indication: DRUG WITHDRAWAL MAINTENANCE THERAPY
     Route: 048
     Dates: start: 20160101
  6. ROYAL KRATOM BALI [Suspect]
     Active Substance: MITRAGYNINE\HERBALS
     Indication: PAIN
     Route: 048
     Dates: start: 20160101
  7. RHODIOLA ROSEA [Concomitant]
     Active Substance: HERBALS
  8. KRATOM GREEN MAGNA DA [Suspect]
     Active Substance: MITRAGYNINE\HERBALS
     Indication: PAIN
     Route: 048
     Dates: start: 20160101
  9. GREEN STRAIN TROPICAL KRATOM [Suspect]
     Active Substance: MITRAGYNINE\HERBALS
     Indication: PAIN
     Route: 048
     Dates: start: 20160101

REACTIONS (11)
  - Loss of employment [None]
  - Impaired quality of life [None]
  - Depressed mood [None]
  - Anger [None]
  - Anxiety [None]
  - Drug withdrawal syndrome [None]
  - Restless legs syndrome [None]
  - Drug dependence [None]
  - Drug ineffective [None]
  - Feeling abnormal [None]
  - Insomnia [None]
